FAERS Safety Report 18456466 (Version 1)
Quarter: 2020Q4

REPORT INFORMATION
  Report Type: Other
  Country: FR (occurrence: FR)
  Receive Date: 20201103
  Receipt Date: 20201103
  Transmission Date: 20210114
  Serious: Yes (Other)
  Sender: FDA-Public Use
  Company Number: FR-ROCHE-2706176

PATIENT
  Age: 24 Year
  Sex: Female

DRUGS (10)
  1. DIAZEPAM. [Suspect]
     Active Substance: DIAZEPAM
     Indication: SCHIZOPHRENIA
     Route: 065
  2. LORMETAZEPAM [Concomitant]
     Active Substance: LORMETAZEPAM
     Indication: SCHIZOPHRENIA
  3. NORDAZEPAM [Concomitant]
     Active Substance: NORDAZEPAM
  4. LOXAPINE. [Concomitant]
     Active Substance: LOXAPINE
  5. PROPRANOLOL [Concomitant]
     Active Substance: PROPRANOLOL HYDROCHLORIDE
     Indication: TACHYCARDIA
  6. TEMAZEPAM. [Concomitant]
     Active Substance: TEMAZEPAM
  7. EPINEPHRINE. [Concomitant]
     Active Substance: EPINEPHRINE
  8. TROPATEPINE [Concomitant]
     Active Substance: TROPATEPINE
     Indication: SCHIZOPHRENIA
  9. OXAZEPAM. [Concomitant]
     Active Substance: OXAZEPAM
  10. RISPERIDONE. [Concomitant]
     Active Substance: RISPERIDONE
     Indication: SCHIZOPHRENIA

REACTIONS (5)
  - Pulmonary oedema [Unknown]
  - Confusional state [Unknown]
  - Asthenia [Unknown]
  - Somnolence [Unknown]
  - Asphyxia [Unknown]
